FAERS Safety Report 19953107 (Version 1)
Quarter: 2021Q4

REPORT INFORMATION
  Report Type: Spontaneous
  Country: US (occurrence: US)
  Receive Date: 20211013
  Receipt Date: 20211013
  Transmission Date: 20220303
  Serious: Yes (Other)
  Sender: FDA-Public Use
  Company Number: None

PATIENT
  Age: 64 Year
  Sex: Female
  Weight: 60.75 kg

DRUGS (6)
  1. REPATHA [Suspect]
     Active Substance: EVOLOCUMAB
     Indication: Hyperlipidaemia
     Dosage: ?          QUANTITY:2 INJECTION(S);OTHER FREQUENCY:EVERY TWO WEEKS;OTHER ROUTE:INJECTED SUBCUTANEOUS
     Route: 058
     Dates: start: 20200730, end: 20210830
  2. VITAMIN D3 [Concomitant]
     Active Substance: CHOLECALCIFEROL
  3. MULTI-VITAMIN [Concomitant]
     Active Substance: .ALPHA.-TOCOPHEROL ACETATE, DL-\ASCORBIC ACID\CYANOCOBALAMIN\FLUORIDE ION\FOLIC ACID\NIACIN\PYRIDOXI
  4. VITAMIN C [Concomitant]
     Active Substance: ASCORBIC ACID
  5. MUSHROOM SUPPLEMENT [Concomitant]
  6. DIETARY SUPPLEMENT\HERBALS\MILK THISTLE [Concomitant]
     Active Substance: DIETARY SUPPLEMENT\HERBALS\MILK THISTLE

REACTIONS (7)
  - Urticaria [None]
  - Pruritus [None]
  - Palpitations [None]
  - Muscle fatigue [None]
  - Back pain [None]
  - Angioedema [None]
  - Injection site cyst [None]
